FAERS Safety Report 9610627 (Version 3)
Quarter: 2014Q1

REPORT INFORMATION
  Report Type: Spontaneous
  Country: US (occurrence: US)
  Receive Date: 20131009
  Receipt Date: 20140117
  Transmission Date: 20141002
  Serious: Yes (Hospitalization, Disabling, Other)
  Sender: FDA-Public Use
  Company Number: US-B.I. PHARMACEUTICALS,INC./RIDGEFIELD-2013-BI-31583BP

PATIENT
  Age: 76 Year
  Sex: Male
  Weight: 82.91 kg

DRUGS (7)
  1. SPIRIVA [Suspect]
     Indication: CHRONIC OBSTRUCTIVE PULMONARY DISEASE
     Dosage: 18 MCG
     Dates: start: 200809, end: 20131029
  2. PLAVIX+ASPIRIN [Concomitant]
     Indication: CEREBROVASCULAR ACCIDENT
     Dates: start: 201303
  3. LANTUS [Concomitant]
     Indication: TYPE 2 DIABETES MELLITUS
     Dosage: FORMULATION: INSULIN
     Dates: start: 201201
  4. METFORMIN [Concomitant]
     Indication: TYPE 2 DIABETES MELLITUS
     Dates: start: 201112
  5. LISINOPRIL [Concomitant]
     Indication: HYPERTENSION
     Dates: start: 201205
  6. LIPITOR [Concomitant]
     Indication: BLOOD CHOLESTEROL
     Dates: start: 200903
  7. CITALOPRAM [Concomitant]
     Indication: AFFECTIVE DISORDER
     Dates: start: 201112

REACTIONS (4)
  - Cerebrovascular accident [Recovered/Resolved with Sequelae]
  - Transient ischaemic attack [Unknown]
  - Cerebrovascular accident [Recovered/Resolved with Sequelae]
  - Cerebrovascular accident [Unknown]
